FAERS Safety Report 8277128-1 (Version None)
Quarter: 2012Q2

REPORT INFORMATION
  Report Type: 
  Country: None (occurrence: None)
  Receive Date: 20120412
  Receipt Date: 20120406
  Transmission Date: 20120825
  Serious: Yes (Death, Other)
  Sender: FDA-Public Use
  Company Number: US-NAPPMUNDI-USA-2012-0084521

PATIENT
  Age: 41 Year
  Sex: Female

DRUGS (1)
  1. OXYCONTIN [Suspect]
     Indication: PRODUCT USED FOR UNKNOWN INDICATION
     Dosage: 10 MG, UNK
     Route: 048

REACTIONS (5)
  - BRAIN DEATH [None]
  - ARTHRITIS BACTERIAL [None]
  - BLOOD PRESSURE DECREASED [None]
  - CARDIAC ARREST [None]
  - RESPIRATORY ARREST [None]
